FAERS Safety Report 8543617-5 (Version None)
Quarter: 2012Q3

REPORT INFORMATION
  Report Type: 
  Country: None (occurrence: None)
  Receive Date: 20120717
  Receipt Date: 20120703
  Transmission Date: 20120928
  Serious: Yes (Hospitalization, Other)
  Sender: FDA-Public Use
  Company Number: 2012ST000548

PATIENT
  Age: 47 Year
  Sex: Female

DRUGS (6)
  1. OMEPRAZOLE [Concomitant]
  2. RITONAVIR [Concomitant]
  3. DARUNAVIR ETHANOLATE [Concomitant]
  4. ABELCET [Suspect]
     Indication: CRYPTOCOCCOSIS
     Dosage: ; IV
     Route: 042
     Dates: start: 20120516
  5. RALTEGRAVIR [Concomitant]
  6. LAMIVUDINE [Concomitant]

REACTIONS (6)
  - COMA [None]
  - RESPIRATORY FAILURE [None]
  - RENAL FAILURE ACUTE [None]
  - HAEMODIALYSIS [None]
  - HYPERNATRAEMIA [None]
  - METABOLIC DISORDER [None]
